FAERS Safety Report 11018365 (Version 2)
Quarter: 2015Q2

REPORT INFORMATION
  Report Type: Spontaneous
  Country: US (occurrence: US)
  Receive Date: 20150412
  Receipt Date: 20150524
  Transmission Date: 20150821
  Serious: Yes (Death)
  Sender: FDA-Public Use
  Company Number: US-JNJFOC-20130615879

PATIENT
  Age: 14 Month
  Sex: Male
  Weight: 10.2 kg

DRUGS (4)
  1. G-CSF [Suspect]
     Active Substance: GRANULOCYTE COLONY-STIMULATING FACTOR NOS
     Indication: NEUROBLASTOMA
     Dosage: 5 MCG/KG/DAY THRU NADIR
     Route: 065
  2. CYCLOPHOSPHAMIDE. [Suspect]
     Active Substance: CYCLOPHOSPHAMIDE
     Indication: NEUROBLASTOMA
     Dosage: 2G/M2/DAY, OVER 4 HOUR WITH MESNA ON DAYS 1 AND 2
     Route: 065
  3. VINCRISTINE [Suspect]
     Active Substance: VINCRISTINE
     Indication: NEUROBLASTOMA
     Dosage: DAY 0 AND DAY 1, 2 CYCLES
     Route: 065
  4. DOXORUBICIN [Suspect]
     Active Substance: DOXORUBICIN
     Indication: NEUROBLASTOMA
     Dosage: DAY 0 AND DAY 1, 2 CYCLES
     Route: 042

REACTIONS (2)
  - Neuroblastoma [Fatal]
  - Product use issue [Unknown]
